FAERS Safety Report 8547182-8 (Version None)
Quarter: 2012Q3

REPORT INFORMATION
  Report Type: 
  Country: None (occurrence: None)
  Receive Date: 20120727
  Receipt Date: 20120223
  Transmission Date: 20120928
  Serious: No
  Sender: FDA-Public Use
  Company Number: US-ASTRAZENECA-2012SE12969

PATIENT
  Age: 70 Year
  Sex: Female
  Weight: 81.6 kg

DRUGS (10)
  1. SEROQUEL [Suspect]
     Indication: SCHIZOPHRENIA
     Route: 048
  2. GLIPIZIDE [Concomitant]
     Indication: DIABETES MELLITUS
  3. LOZARTAN [Concomitant]
     Indication: BLOOD PRESSURE ABNORMAL
  4. ATENOLOL [Concomitant]
     Indication: BLOOD PRESSURE ABNORMAL
  5. LEVOTHYROXINE SODIUM [Concomitant]
  6. ACETYLCYSTEINE [Concomitant]
  7. GEMFIBROZIL [Concomitant]
  8. SEROQUEL [Suspect]
     Indication: SLEEP DISORDER
     Route: 048
  9. SCITCIFLAM [Concomitant]
  10. METFORMIN HYDROCHLORIDE [Concomitant]
     Indication: DIABETES MELLITUS

REACTIONS (3)
  - DIABETES MELLITUS [None]
  - DECREASED APPETITE [None]
  - DRUG DOSE OMISSION [None]
